FAERS Safety Report 24708010 (Version 1)
Quarter: 2024Q4

REPORT INFORMATION
  Report Type: Spontaneous
  Country: US (occurrence: US)
  Receive Date: 20241206
  Receipt Date: 20241206
  Transmission Date: 20250115
  Serious: Yes (Death)
  Sender: FRESENIUS MEDICAL CARE
  Company Number: US-FMCRTG-FMC-2412-001556

PATIENT
  Age: 53 Year
  Sex: Male
  Weight: 79 kg

DRUGS (3)
  1. DELFLEX WITH DEXTROSE 1.5% LOW MAGNESIUM LOW CALCIUM [Suspect]
     Active Substance: CALCIUM CHLORIDE\DEXTROSE\MAGNESIUM CHLORIDE\SODIUM CHLORIDE\SODIUM LACTATE
     Indication: End stage renal disease
     Dosage: 7 DAYS-A-WEEK, CA = 2.5 MEQ/L, MG = 0.5 MEQ/L DIALYSATE, EXCHANGES = 4, FILL VOLUME = 2800 ML, AVERA
     Route: 033
  2. DELFLEX WITH DEXTROSE 2.5% LOW MAGNESIUM LOW CALCIUM [Suspect]
     Active Substance: CALCIUM CHLORIDE\DEXTROSE\MAGNESIUM CHLORIDE\SODIUM CHLORIDE\SODIUM LACTATE
     Indication: End stage renal disease
     Dosage: 7 DAYS-A-WEEK, CA = 2.5 MEQ/L, MG = 0.5 MEQ/L DIALYSATE, EXCHANGES = 4, FILL VOLUME = 2800 ML, AVERA
     Route: 033
  3. DELFLEX WITH DEXTROSE 4.25% LOW MAGNESIUM LOW CALCIUM [Suspect]
     Active Substance: CALCIUM CHLORIDE\DEXTROSE\MAGNESIUM CHLORIDE\SODIUM CHLORIDE\SODIUM LACTATE
     Indication: End stage renal disease
     Dosage: 7 DAYS-A-WEEK, CA = 2.5 MEQ/L, MG = 0.5 MEQ/L DIALYSATE, EXCHANGES = 4, FILL VOLUME = 2800 ML, AVERA
     Route: 033

REACTIONS (1)
  - Cardiac arrest [Fatal]

NARRATIVE: CASE EVENT DATE: 20241127
